FAERS Safety Report 6890361-6 (Version None)
Quarter: 2010Q3

REPORT INFORMATION
  Report Type: 
  Country: None (occurrence: None)
  Receive Date: 20100730
  Receipt Date: 20081003
  Transmission Date: 20110219
  Serious: No
  Sender: FDA-Public Use
  Company Number: US-PFIZER INC-2008074652

PATIENT
  Sex: Female
  Weight: 64.41 kg

DRUGS (6)
  1. LIPITOR [Suspect]
     Indication: BLOOD CHOLESTEROL INCREASED
     Route: 048
     Dates: start: 20080410
  2. LIPITOR [Suspect]
     Indication: HYPERLIPIDAEMIA
  3. SINEMET [Concomitant]
  4. SYNTHROID [Concomitant]
  5. LISINOPRIL [Concomitant]
  6. RELAFEN [Concomitant]

REACTIONS (4)
  - DYSPHAGIA [None]
  - MUSCLE SPASMS [None]
  - MYALGIA [None]
  - WRONG TECHNIQUE IN DRUG USAGE PROCESS [None]
